FAERS Safety Report 4710709-8 (Version None)
Quarter: 2005Q3

REPORT INFORMATION
  Report Type: 
  Country: None (occurrence: None)
  Receive Date: 20050711
  Receipt Date: 20050629
  Transmission Date: 20060218
  Serious: Yes (Hospitalization, Disabling)
  Sender: FDA-Public Use
  Company Number: US-MERCK-0506USA04037

PATIENT
  Age: 53 Year
  Sex: Male
  Weight: 88 kg

DRUGS (7)
  1. ZOCOR [Suspect]
     Indication: BLOOD CHOLESTEROL INCREASED
     Route: 048
     Dates: start: 19990101, end: 20020101
  2. MEVACOR [Suspect]
     Indication: BLOOD CHOLESTEROL INCREASED
     Route: 048
     Dates: start: 19960101, end: 20020101
  3. MEVACOR [Suspect]
     Indication: HYPERCHOLESTEROLAEMIA
     Route: 048
     Dates: start: 19960101, end: 20020101
  4. ACETAMINOPHEN [Concomitant]
     Route: 048
  5. TIAZAC [Concomitant]
     Route: 048
  6. SYNTHROID [Concomitant]
     Route: 048
  7. TRAZODONE HYDROCHLORIDE [Concomitant]
     Route: 048

REACTIONS (11)
  - BACK PAIN [None]
  - BLOOD CREATINE PHOSPHOKINASE INCREASED [None]
  - COMPARTMENT SYNDROME [None]
  - HYPOAESTHESIA [None]
  - HYPONATRAEMIA [None]
  - MYALGIA [None]
  - PAIN [None]
  - PARAESTHESIA [None]
  - PERONEAL NERVE PALSY [None]
  - RHABDOMYOLYSIS [None]
  - SWELLING [None]
